FAERS Safety Report 24197572 (Version 2)
Quarter: 2024Q3

REPORT INFORMATION
  Report Type: Spontaneous
  Country: FR (occurrence: FR)
  Receive Date: 20240811
  Receipt Date: 20240925
  Transmission Date: 20241017
  Serious: Yes (Hospitalization, Other)
  Sender: SANOFI AVENTIS
  Company Number: None

PATIENT
  Age: 71 Year
  Sex: Male
  Weight: 56 kg

DRUGS (2)
  1. DUPIXENT [Suspect]
     Active Substance: DUPILUMAB
     Indication: NSAID exacerbated respiratory disease
     Dosage: 300 MG, QOW
     Route: 058
     Dates: start: 20210203, end: 202302
  2. DUPIXENT [Suspect]
     Active Substance: DUPILUMAB
     Dosage: UNK
     Dates: start: 202306

REACTIONS (3)
  - Eosinophilia [Recovered/Resolved]
  - Eosinophilic granulomatosis with polyangiitis [Not Recovered/Not Resolved]
  - Off label use [Unknown]

NARRATIVE: CASE EVENT DATE: 20210203
